FAERS Safety Report 14623470 (Version 1)
Quarter: 2018Q1

REPORT INFORMATION
  Report Type: Spontaneous
  Country: US (occurrence: US)
  Receive Date: 20180312
  Receipt Date: 20180312
  Transmission Date: 20180509
  Serious: Yes (Other)
  Sender: FDA-Public Use
  Company Number: US-009507513-1803USA002460

PATIENT
  Sex: Female

DRUGS (1)
  1. NEXPLANON [Suspect]
     Active Substance: ETONOGESTREL
     Indication: CONTRACEPTION
     Dosage: 1 DF, UNK 68MG/ONCE
     Route: 059
     Dates: start: 2014

REACTIONS (11)
  - Wheezing [Unknown]
  - Chest discomfort [Unknown]
  - Incorrect drug administration duration [Unknown]
  - Unintended pregnancy [Recovered/Resolved]
  - Device expulsion [Unknown]
  - Upper respiratory tract infection [Unknown]
  - Pregnancy with implant contraceptive [Recovered/Resolved]
  - Abortion induced [Unknown]
  - Complication associated with device [Unknown]
  - Dyspnoea [Unknown]
  - Complication associated with device [Unknown]

NARRATIVE: CASE EVENT DATE: 2015
